FAERS Safety Report 6710670-0 (Version None)
Quarter: 2010Q2

REPORT INFORMATION
  Report Type: 
  Country: None (occurrence: None)
  Receive Date: 20100504
  Receipt Date: 20100504
  Transmission Date: 20101027
  Serious: Yes (Other)
  Sender: FDA-Public Use
  Company Number: None

PATIENT
  Age: 12 Year
  Sex: Male
  Weight: 59.8748 kg

DRUGS (2)
  1. SYMBICORT [Suspect]
     Indication: ASTHMA
     Dosage: 2 PUFFS 2 TIMES PER DAY INHAL
     Route: 055
     Dates: start: 20100319, end: 20100503
  2. ALBUTEROL [Concomitant]

REACTIONS (6)
  - COUGH [None]
  - FATIGUE [None]
  - NAUSEA [None]
  - RHINORRHOEA [None]
  - SOMNOLENCE [None]
  - VOMITING [None]
